FAERS Safety Report 12334783 (Version 1)
Quarter: 2016Q2

REPORT INFORMATION
  Report Type: Spontaneous
  Country: US (occurrence: US)
  Receive Date: 20160504
  Receipt Date: 20160504
  Transmission Date: 20160815
  Serious: Yes (Hospitalization, Other)
  Sender: FDA-Public Use
  Company Number: US-MDT-ADR-2016-00799

PATIENT
  Age: 6 Year
  Sex: Male

DRUGS (1)
  1. BACLOFEN. [Suspect]
     Active Substance: BACLOFEN
     Route: 037

REACTIONS (10)
  - Hypotonia [Unknown]
  - Asthenia [Unknown]
  - Contusion [Unknown]
  - Impaired healing [Unknown]
  - Spinal deformity [Unknown]
  - Personality change [Unknown]
  - Performance status decreased [Unknown]
  - Hypertonia [Unknown]
  - Skin disorder [Unknown]
  - Pneumonia [Unknown]
